FAERS Safety Report 19400985 (Version 3)
Quarter: 2023Q2

REPORT INFORMATION
  Report Type: Spontaneous
  Country: US (occurrence: US)
  Receive Date: 20210610
  Receipt Date: 20230502
  Transmission Date: 20230721
  Serious: Yes (Other)
  Sender: FDA-Public Use
  Company Number: US-SA-SAC20210608001203

PATIENT
  Age: 47 Year
  Sex: Male

DRUGS (1)
  1. AUBAGIO [Suspect]
     Active Substance: TERIFLUNOMIDE
     Indication: Multiple sclerosis
     Dosage: 7 MG, QD
     Route: 048
     Dates: start: 20170302

REACTIONS (3)
  - Multiple sclerosis [Unknown]
  - Multiple sclerosis relapse [Unknown]
  - Rash [Unknown]

NARRATIVE: CASE EVENT DATE: 20210901
